FAERS Safety Report 14939687 (Version 1)
Quarter: 2018Q2

REPORT INFORMATION
  Report Type: Spontaneous
  Country: US (occurrence: US)
  Receive Date: 20180525
  Receipt Date: 20180525
  Transmission Date: 20180711
  Serious: Yes (Death)
  Sender: FDA-Public Use
  Company Number: US-APOTEX-2018AP014988

PATIENT
  Age: 23 Year
  Sex: Female

DRUGS (4)
  1. HYDROCORTISONE. [Concomitant]
     Active Substance: HYDROCORTISONE
     Indication: ILL-DEFINED DISORDER
     Dosage: UNK
     Route: 065
  2. METHOTREXATE. [Suspect]
     Active Substance: METHOTREXATE
     Indication: ERYTHROPOIESIS ABNORMAL
     Dosage: UNK
     Route: 065
  3. CYCLOSPORINE. [Suspect]
     Active Substance: CYCLOSPORINE
     Indication: LYMPHOCYTIC LEUKAEMIA
  4. CYCLOSPORINE. [Suspect]
     Active Substance: CYCLOSPORINE
     Indication: ERYTHROPOIESIS ABNORMAL
     Dosage: UNK
     Route: 065

REACTIONS (4)
  - Haemorrhage intracranial [Fatal]
  - Vasculitis [Fatal]
  - Central nervous system lesion [Fatal]
  - Purulent discharge [Fatal]
